FAERS Safety Report 10230743 (Version 1)
Quarter: 2014Q2

REPORT INFORMATION
  Report Type: Spontaneous
  Country: IT (occurrence: IT)
  Receive Date: 20140611
  Receipt Date: 20140611
  Transmission Date: 20141212
  Serious: Yes (Hospitalization)
  Sender: FDA-Public Use
  Company Number: IT-ACTAVIS-2014-12113

PATIENT
  Age: 44 Year
  Sex: Male

DRUGS (1)
  1. ALPRAZOLAM (UNKNOWN) [Suspect]
     Indication: ANXIETY
     Dosage: 15 MG, DAILY
     Route: 048
     Dates: start: 20111128, end: 20120528

REACTIONS (1)
  - Drug dependence [Recovering/Resolving]
